FAERS Safety Report 5808458-8 (Version None)
Quarter: 2008Q3

REPORT INFORMATION
  Report Type: 
  Country: None (occurrence: None)
  Receive Date: 20080710
  Receipt Date: 20080710
  Transmission Date: 20090109
  Serious: Yes (Other)
  Sender: FDA-Public Use
  Company Number: None

PATIENT
  Sex: Male
  Weight: 96.6162 kg

DRUGS (1)
  1. LUPRON DEPOT-PED [Suspect]
     Indication: DRUG THERAPY CHANGED
     Dosage: 36 MG ? 1ST AND LAST
     Dates: start: 20080601

REACTIONS (9)
  - COUGH [None]
  - HEADACHE [None]
  - HOT FLUSH [None]
  - HYPERHIDROSIS [None]
  - INFLUENZA LIKE ILLNESS [None]
  - NAUSEA [None]
  - PRURITUS [None]
  - SKIN REACTION [None]
  - WRONG TECHNIQUE IN DRUG USAGE PROCESS [None]
